FAERS Safety Report 8375128-4 (Version None)
Quarter: 2012Q2

REPORT INFORMATION
  Report Type: 
  Country: None (occurrence: None)
  Receive Date: 20120521
  Receipt Date: 20120508
  Transmission Date: 20120825
  Serious: Yes (Death)
  Sender: FDA-Public Use
  Company Number: US-BAXTER-2012BAX005025

PATIENT
  Sex: Male

DRUGS (2)
  1. DIANEAL [Suspect]
     Route: 033
     Dates: end: 20120504
  2. DIANEAL [Suspect]
     Indication: PERITONEAL DIALYSIS
     Route: 033
     Dates: end: 20120504

REACTIONS (3)
  - CEREBROVASCULAR ACCIDENT [None]
  - PNEUMONIA [None]
  - RENAL FAILURE [None]
